FAERS Safety Report 6782516-6 (Version None)
Quarter: 2010Q2

REPORT INFORMATION
  Report Type: 
  Country: None (occurrence: None)
  Receive Date: 20100616
  Receipt Date: 20100531
  Transmission Date: 20101027
  Serious: Yes (Other)
  Sender: FDA-Public Use
  Company Number: TR-ACCORD-005397

PATIENT
  Age: 40 Year
  Sex: Female

DRUGS (3)
  1. MYCOPHENOLATE MOFETIL [Suspect]
     Indication: RENAL TRANSPLANT
  2. EVEROLIMUS(EVEROLIMUS) [Suspect]
     Indication: RENAL TRANSPLANT
  3. CORTICOSTEROIDS(CORTICOSTEROIDS) [Suspect]
     Indication: RENAL TRANSPLANT

REACTIONS (2)
  - KIDNEY TRANSPLANT REJECTION [None]
  - THROMBOTIC MICROANGIOPATHY [None]
